FAERS Safety Report 4367454-0 (Version None)
Quarter: 2004Q2

REPORT INFORMATION
  Report Type: 
  Country: None (occurrence: None)
  Receive Date: 20040520
  Receipt Date: 20040507
  Transmission Date: 20050107
  Serious: No
  Sender: FDA-Public Use
  Company Number: CART-10248

PATIENT
  Age: 44 Year
  Sex: Female

DRUGS (1)
  1. CARTICEL [Suspect]
     Indication: ARTHROPATHY
     Dosage: 1 NA ONCE IS
     Route: 035
     Dates: start: 20021014, end: 20021014

REACTIONS (4)
  - ARTHRALGIA [None]
  - FAILURE OF IMPLANT [None]
  - GRAFT COMPLICATION [None]
  - KNEE ARTHROPLASTY [None]
